FAERS Safety Report 8339111 (Version 2)
Quarter: 2014Q2

REPORT INFORMATION
  Report Type: Spontaneous
  Country: US (occurrence: US)
  Receive Date: 20111130
  Receipt Date: 20140510
  Transmission Date: 20141212
  Serious: Yes (Hospitalization, Other)
  Sender: FDA-Public Use
  Company Number: US200903002756

PATIENT
  Age: 49 Year
  Sex: Male
  Weight: 91.16 kg

DRUGS (23)
  1. BYETTA PEN DISPOSABLE [Suspect]
     Indication: TYPE 2 DIABETES MELLITUS
     Route: 058
     Dates: start: 20060613
  2. BYETTA PEN DISPOSABLE [Suspect]
     Indication: TYPE 2 DIABETES MELLITUS
     Route: 058
     Dates: end: 20081218
  3. EXENATIDE 5MCG PEN, DISPOSABLE DEVICE [Concomitant]
  4. EXENATIDE 10MCG PEN, DISPOSABLE DEVICE [Concomitant]
  5. ALTACE [Concomitant]
     Route: 048
  6. HUMALOG LISPRO [Concomitant]
  7. HUMALOG LISPRO [Concomitant]
  8. LIPITOR [Concomitant]
  9. LOVASTATIN [Concomitant]
     Route: 048
  10. METFORMIN [Concomitant]
     Route: 048
  11. METFORMIN [Concomitant]
     Route: 048
  12. ACETAMINOPHEN + HYDROCODONE [Concomitant]
     Route: 048
  13. ALPRAZOLAM [Concomitant]
     Route: 048
  14. NITROLINGUAL SPRAY [Concomitant]
  15. SIMVASTATIN [Concomitant]
     Route: 048
  16. TRAZODONE [Concomitant]
     Route: 048
  17. SULFAMETHOXAZOLE + TRIMETHOPRIM [Concomitant]
     Route: 048
  18. PROMETHAZINE [Concomitant]
     Route: 054
  19. TRAMADOL [Concomitant]
  20. SODIUM CHLORIDE [Concomitant]
     Route: 042
  21. SODIUM CHLORIDE [Concomitant]
     Dates: start: 20070722, end: 20070723
  22. PROTONIX [Concomitant]
     Route: 042
     Dates: start: 20070722
  23. LEVAQUIN [Concomitant]
     Route: 042
     Dates: start: 20070722

REACTIONS (3)
  - Pancreatitis acute [Not Recovered/Not Resolved]
  - Renal injury [Unknown]
  - Off label use [Recovered/Resolved]
